FAERS Safety Report 6330041-9 (Version None)
Quarter: 2009Q3

REPORT INFORMATION
  Report Type: 
  Country: None (occurrence: None)
  Receive Date: 20090825
  Receipt Date: 20090810
  Transmission Date: 20100115
  Serious: Yes (Other)
  Sender: FDA-Public Use
  Company Number: DSU-2009-01663

PATIENT
  Sex: Female

DRUGS (4)
  1. BENICAR [Suspect]
     Indication: HYPERTENSION
     Dosage: PER ORAL
     Route: 048
     Dates: start: 20040101
  2. WELLBUTRIN [Concomitant]
  3. PROZAC [Concomitant]
  4. PRENATAL VITAMINS (ASCORBIC ACID, BIOTIN, TOCOPHEROL, NICOTINIC ACID, [Concomitant]

REACTIONS (4)
  - AMNIOTIC FLUID VOLUME INCREASED [None]
  - CAESAREAN SECTION [None]
  - DRUG EXPOSURE DURING PREGNANCY [None]
  - VAGINAL DISCHARGE [None]
